FAERS Safety Report 5811102-7 (Version None)
Quarter: 2008Q3

REPORT INFORMATION
  Report Type: 
  Country: None (occurrence: None)
  Receive Date: 20080710
  Receipt Date: 20080707
  Transmission Date: 20090109
  Serious: Yes (Hospitalization)
  Sender: FDA-Public Use
  Company Number: LTI2008A00092

PATIENT
  Sex: Female

DRUGS (1)
  1. ACTOS [Suspect]
     Indication: TYPE 2 DIABETES MELLITUS
     Dosage: (1 D)  ORAL
     Route: 048
     Dates: start: 20070101, end: 20070101

REACTIONS (2)
  - ACUTE PULMONARY OEDEMA [None]
  - CORONARY ARTERY DISEASE [None]
